FAERS Safety Report 8348406-2 (Version None)
Quarter: 2012Q2

REPORT INFORMATION
  Report Type: 
  Country: None (occurrence: None)
  Receive Date: 20120509
  Receipt Date: 20120504
  Transmission Date: 20120825
  Serious: Yes (Hospitalization, Other)
  Sender: FDA-Public Use
  Company Number: US-ABBOTT-12P-163-0927635-00

PATIENT
  Sex: Female

DRUGS (17)
  1. HUMIRA [Suspect]
     Dates: end: 20120202
  2. HUMIRA [Suspect]
     Route: 058
     Dates: start: 20120301
  3. ATIVAN [Concomitant]
     Indication: PRODUCT USED FOR UNKNOWN INDICATION
  4. FLEXERIL [Concomitant]
     Indication: RHEUMATOID ARTHRITIS
  5. TRAZODONE HCL [Concomitant]
     Indication: PRODUCT USED FOR UNKNOWN INDICATION
  6. ZOLPIDEM [Concomitant]
     Indication: INSOMNIA
  7. FLEXERIL [Concomitant]
     Indication: MUSCLE SPASMS
  8. LORTAB [Concomitant]
     Indication: SPINAL DISORDER
  9. HUMIRA [Suspect]
     Indication: RHEUMATOID ARTHRITIS
     Route: 058
     Dates: start: 20100101, end: 20100101
  10. LORTAB [Concomitant]
     Indication: PAIN
  11. HUMIRA [Suspect]
     Indication: RHEUMATOID ARTHRITIS
     Route: 058
     Dates: start: 20080101, end: 20080101
  12. HUMIRA [Suspect]
     Route: 058
  13. DIOVAN [Concomitant]
     Indication: PRODUCT USED FOR UNKNOWN INDICATION
     Route: 048
  14. FLEXERIL [Concomitant]
     Indication: SCOLIOSIS
  15. HUMIRA [Suspect]
     Route: 058
     Dates: start: 20080101, end: 20090101
  16. SYNTHROID [Concomitant]
     Indication: HYPOTHYROIDISM
     Route: 048
  17. CYMBALTA [Concomitant]
     Indication: PRODUCT USED FOR UNKNOWN INDICATION

REACTIONS (14)
  - DEVICE BREAKAGE [None]
  - INJECTION SITE SWELLING [None]
  - ARTHRITIS INFECTIVE [None]
  - WOUND [None]
  - MEMORY IMPAIRMENT [None]
  - ARTHRALGIA [None]
  - LACERATION [None]
  - ERYTHEMA [None]
  - SKIN INFECTION [None]
  - INJECTION SITE ERYTHEMA [None]
  - INJECTION SITE MASS [None]
  - INJECTION SITE RASH [None]
  - DEVICE FAILURE [None]
  - DISTURBANCE IN ATTENTION [None]
